FAERS Safety Report 6104504-5 (Version None)
Quarter: 2009Q1

REPORT INFORMATION
  Report Type: 
  Country: None (occurrence: None)
  Receive Date: 20090305
  Receipt Date: 20090304
  Transmission Date: 20090719
  Serious: No
  Sender: FDA-Public Use
  Company Number: US-B.I. PHARMACEUTICALS,INC./RIDGEFIELD-2008-BP-17317BP

PATIENT
  Age: 56 Year
  Sex: Male

DRUGS (2)
  1. FLOMAX [Suspect]
     Indication: DYSURIA
     Dosage: .4MG
     Route: 048
     Dates: start: 20081110, end: 20081112
  2. FLOMAX [Suspect]
     Indication: PROSTATOMEGALY

REACTIONS (4)
  - COUGH [None]
  - OROPHARYNGEAL PAIN [None]
  - POSTNASAL DRIP [None]
  - RHINORRHOEA [None]
